FAERS Safety Report 5220080-3 (Version None)
Quarter: 2007Q1

REPORT INFORMATION
  Report Type: 
  Country: None (occurrence: None)
  Receive Date: 20070124
  Receipt Date: 20070124
  Transmission Date: 20070707
  Serious: No
  Sender: FDA-Public Use
  Company Number: None

PATIENT
  Age: 37 Year
  Sex: Male
  Weight: 63.5036 kg

DRUGS (5)
  1. NAFCILLIN SODIUM [Suspect]
     Indication: CELLULITIS
     Dosage: 2 G Q4H IV
     Route: 042
     Dates: start: 20060904, end: 20060926
  2. ABACAVIR/LAMIVUDINE [Concomitant]
  3. AZITHROMYCIN [Concomitant]
  4. EFAVIRENZ [Concomitant]
  5. SULFAMETHOXAZOLE + TRIMETHOPRIM [Concomitant]

REACTIONS (2)
  - PRURITUS [None]
  - URTICARIA [None]
